FAERS Safety Report 8462106-X (Version None)
Quarter: 2012Q2

REPORT INFORMATION
  Report Type: 
  Country: None (occurrence: None)
  Receive Date: 20120625
  Receipt Date: 20120619
  Transmission Date: 20120825
  Serious: Yes (Hospitalization)
  Sender: FDA-Public Use
  Company Number: US-PFIZER INC-2012148451

PATIENT
  Sex: Female
  Weight: 90.703 kg

DRUGS (9)
  1. AMLODIPINE [Concomitant]
     Indication: BLOOD PRESSURE ABNORMAL
     Dosage: 10 MG, DAILY
  2. TRAMADOL [Concomitant]
     Indication: SHOULDER ARTHROPLASTY
  3. XANAX [Suspect]
     Indication: PANIC ATTACK
     Dosage: 5 MG, 2X/DAY
  4. PRISTIQ [Suspect]
     Indication: ANTIDEPRESSANT THERAPY
     Dosage: 50 MG, DAILY
     Dates: end: 20120101
  5. VICODIN [Concomitant]
     Indication: KNEE ARTHROPLASTY
     Dosage: UNK, AS NEEDED
  6. MELOXICAM [Suspect]
     Indication: ARTHRITIS
     Dosage: 7.5 MG, 2X/DAY
     Dates: start: 20120101
  7. TRAMADOL [Concomitant]
     Indication: KNEE ARTHROPLASTY
     Dosage: 50 MG, 3X/DAY
  8. VICODIN [Concomitant]
     Indication: SHOULDER ARTHROPLASTY
  9. NAMENDA [Concomitant]
     Indication: DEMENTIA
     Dosage: 5 MG, 2X/DAY

REACTIONS (4)
  - LIMB INJURY [None]
  - SEPSIS [None]
  - PANIC ATTACK [None]
  - FALL [None]
